FAERS Safety Report 17425527 (Version 1)
Quarter: 2020Q1

REPORT INFORMATION
  Report Type: Report from Study
  Country: None (occurrence: US)
  Receive Date: 20200218
  Receipt Date: 20200218
  Transmission Date: 20200409
  Serious: Yes (Death)
  Sender: FDA-Public Use
  Company Number: US-ABBVIE-20K-163-3280914-00

PATIENT
  Sex: Male

DRUGS (1)
  1. VENCLEXTA [Suspect]
     Active Substance: VENETOCLAX
     Indication: CHRONIC LYMPHOCYTIC LEUKAEMIA
     Route: 048
     Dates: start: 20200113

REACTIONS (1)
  - Death [Fatal]

NARRATIVE: CASE EVENT DATE: 2020
